FAERS Safety Report 7685249-7 (Version None)
Quarter: 2011Q3

REPORT INFORMATION
  Report Type: 
  Country: None (occurrence: None)
  Receive Date: 20110816
  Receipt Date: 20110810
  Transmission Date: 20111222
  Serious: Yes (Hospitalization, Disabling, Other)
  Sender: FDA-Public Use
  Company Number: US-ELI_LILLY_AND_COMPANY-US201007000560

PATIENT
  Sex: Male
  Weight: 129.71 kg

DRUGS (5)
  1. INSULIN [Concomitant]
  2. TYLENOL                                 /SCH/ [Concomitant]
  3. BYETTA [Suspect]
     Dosage: UNK, UNKNOWN
     Dates: start: 20060401, end: 20090801
  4. ANTACIDS [Concomitant]
  5. ANTIBIOTICS [Concomitant]

REACTIONS (4)
  - PANCREATITIS [None]
  - CHOLECYSTECTOMY [None]
  - RENAL DISORDER [None]
  - OFF LABEL USE [None]
